FAERS Safety Report 13347028 (Version 1)
Quarter: 2017Q1

REPORT INFORMATION
  Report Type: Spontaneous
  Country: US (occurrence: US)
  Receive Date: 20170317
  Receipt Date: 20170317
  Transmission Date: 20170428
  Serious: Yes (Hospitalization)
  Sender: FDA-Public Use
  Company Number: US-SA-2017SA039677

PATIENT
  Age: 71 Year
  Sex: Female

DRUGS (4)
  1. MULTAQ [Suspect]
     Active Substance: DRONEDARONE
     Indication: CARDIAC FLUTTER
     Dosage: 8 YEARS AGO
     Route: 048
  2. DEMADEX [Suspect]
     Active Substance: TORSEMIDE
     Route: 065
  3. MULTAQ [Suspect]
     Active Substance: DRONEDARONE
     Indication: CARDIAC FLUTTER
     Route: 048
  4. K-DUR [Suspect]
     Active Substance: POTASSIUM CHLORIDE
     Route: 065

REACTIONS (6)
  - Fluid retention [Recovering/Resolving]
  - Abdominal distension [Recovering/Resolving]
  - Joint swelling [Recovering/Resolving]
  - Dyspnoea [Recovering/Resolving]
  - Limb discomfort [Recovering/Resolving]
  - Weight increased [Recovering/Resolving]
